FAERS Safety Report 16649362 (Version 1)
Quarter: 2019Q3

REPORT INFORMATION
  Report Type: Report from Study
  Country: CA (occurrence: CA)
  Receive Date: 20190730
  Receipt Date: 20190730
  Transmission Date: 20191004
  Serious: Yes (Other)
  Sender: FDA-Public Use
  Company Number: CA-JNJFOC-20190734190

PATIENT
  Age: 72 Year
  Sex: Male

DRUGS (3)
  1. DALTEPARIN [Suspect]
     Active Substance: DALTEPARIN
     Indication: DEEP VEIN THROMBOSIS
     Route: 058
  2. IMBRUVICA [Suspect]
     Active Substance: IBRUTINIB
     Route: 048
  3. IMBRUVICA [Suspect]
     Active Substance: IBRUTINIB
     Indication: CHRONIC LYMPHOCYTIC LEUKAEMIA
     Dosage: STRENGTH = 140 MG
     Route: 048

REACTIONS (6)
  - Haemorrhage [Not Recovered/Not Resolved]
  - Increased tendency to bruise [Unknown]
  - Blood iron decreased [Unknown]
  - Injection site haemorrhage [Unknown]
  - Application site laceration [Unknown]
  - Fatigue [Unknown]
